FAERS Safety Report 26091510 (Version 1)
Quarter: 2025Q4

REPORT INFORMATION
  Report Type: Spontaneous
  Country: US (occurrence: None)
  Receive Date: 20251126
  Receipt Date: 20251126
  Transmission Date: 20260118
  Serious: Yes (Death, Hospitalization)
  Sender: FDA-CTU
  Company Number: None

PATIENT
  Age: 55 Year
  Sex: Male
  Weight: 94 kg

DRUGS (3)
  1. BENDAMUSTINE HYDROCHLORIDE [Suspect]
     Active Substance: BENDAMUSTINE HYDROCHLORIDE
     Dates: end: 20210802
  2. CYTARABINE [Concomitant]
     Active Substance: CYTARABINE
     Dates: end: 20210804
  3. RITUXIMAB [Concomitant]
     Active Substance: RITUXIMAB
     Dates: end: 20210802

REACTIONS (7)
  - Acute kidney injury [None]
  - Hypoglycaemia [None]
  - Metabolic acidosis [None]
  - Encephalopathy [None]
  - Haemodialysis [None]
  - Sepsis [None]
  - General physical health deterioration [None]

NARRATIVE: CASE EVENT DATE: 20251122
